FAERS Safety Report 22239968 (Version 1)
Quarter: 2023Q2

REPORT INFORMATION
  Report Type: Report from Study
  Country: US (occurrence: None)
  Receive Date: 20230421
  Receipt Date: 20230421
  Transmission Date: 20230721
  Serious: Yes (Other)
  Sender: FDA-Public Use
  Company Number: 2023A088065

PATIENT
  Sex: Female
  Weight: 57.2 kg

DRUGS (2)
  1. LYNPARZA [Suspect]
     Active Substance: OLAPARIB
     Indication: Adenocarcinoma metastatic
     Route: 048
     Dates: start: 20201209
  2. LYNPARZA [Suspect]
     Active Substance: OLAPARIB
     Indication: Adenocarcinoma metastatic
     Route: 048
     Dates: start: 202303

REACTIONS (2)
  - Toxicity to various agents [Unknown]
  - Haemoglobin decreased [Unknown]
